FAERS Safety Report 6135958-6 (Version None)
Quarter: 2009Q1

REPORT INFORMATION
  Report Type: 
  Country: None (occurrence: None)
  Receive Date: 20090329
  Receipt Date: 20090216
  Transmission Date: 20090719
  Serious: No
  Sender: FDA-Public Use
  Company Number: US-BAUSCH-2009BL000666

PATIENT
  Age: 28 Year
  Sex: Female

DRUGS (1)
  1. ALAWAY [Suspect]
     Indication: ALLERGY TO ANIMAL
     Route: 047
     Dates: start: 20090215, end: 20090215

REACTIONS (5)
  - ASTHENOPIA [None]
  - DRUG INEFFECTIVE FOR UNAPPROVED INDICATION [None]
  - EYE PAIN [None]
  - MEDICATION ERROR [None]
  - PHOTOPHOBIA [None]
